FAERS Safety Report 18002102 (Version 1)
Quarter: 2020Q3

REPORT INFORMATION
  Report Type: Report from Study
  Country: None (occurrence: US)
  Receive Date: 20200710
  Receipt Date: 20200710
  Transmission Date: 20201103
  Serious: Yes (Other)
  Sender: FDA-Public Use
  Company Number: US-ABBVIE-19K-163-2944493-00

PATIENT
  Age: 48 Year
  Sex: Female

DRUGS (5)
  1. HUMIRA [Suspect]
     Active Substance: ADALIMUMAB
     Indication: RHEUMATOID ARTHRITIS
  2. NYSTATIN. [Concomitant]
     Active Substance: NYSTATIN
     Indication: PRODUCT USED FOR UNKNOWN INDICATION
     Route: 065
  3. HUMIRA [Suspect]
     Active Substance: ADALIMUMAB
     Indication: ANKYLOSING SPONDYLITIS
     Route: 058
     Dates: start: 2019, end: 20190829
  4. HUMIRA [Suspect]
     Active Substance: ADALIMUMAB
     Indication: RHEUMATOID ARTHRITIS
     Route: 058
     Dates: start: 20200523, end: 20200601
  5. HUMIRA [Suspect]
     Active Substance: ADALIMUMAB
     Indication: ANKYLOSING SPONDYLITIS
     Route: 058
     Dates: start: 2020

REACTIONS (22)
  - Basedow^s disease [Unknown]
  - Arthralgia [Unknown]
  - Joint swelling [Unknown]
  - Impaired self-care [Unknown]
  - Pain [Unknown]
  - Hypersensitivity [Unknown]
  - Thyroid disorder [Recovering/Resolving]
  - Blood cholesterol increased [Recovering/Resolving]
  - Nausea [Unknown]
  - Spinal compression fracture [Unknown]
  - Joint stiffness [Unknown]
  - Candida infection [Recovering/Resolving]
  - Blood triglycerides increased [Unknown]
  - Discomfort [Unknown]
  - Spondylitis [Unknown]
  - Oral discomfort [Unknown]
  - Drug ineffective [Unknown]
  - Joint injury [Unknown]
  - Gait disturbance [Unknown]
  - Anxiety [Unknown]
  - Synovial cyst [Unknown]
  - Loss of personal independence in daily activities [Unknown]

NARRATIVE: CASE EVENT DATE: 2019
